FAERS Safety Report 9885785 (Version 3)
Quarter: 2014Q2

REPORT INFORMATION
  Report Type: Spontaneous
  Country: US (occurrence: US)
  Receive Date: 20140210
  Receipt Date: 20140404
  Transmission Date: 20141212
  Serious: Yes (Death, Hospitalization, Other)
  Sender: FDA-Public Use
  Company Number: US-BRISTOL-MYERS SQUIBB COMPANY-18571646

PATIENT
  Age: 50 Year
  Sex: Female

DRUGS (4)
  1. BYETTA PEN DISPOSABLE [Suspect]
     Indication: TYPE 2 DIABETES MELLITUS
     Dosage: 1NV06,2D06,31D06,2F07,1MR07,1AP07,30AP07,1JUN07,2JL07,1AU07,26S07,23OC07,27NV07,4JA08,19MY08,08JL08
     Dates: start: 20061002, end: 20081106
  2. JANUMET [Suspect]
     Indication: TYPE 2 DIABETES MELLITUS
     Dates: start: 20090127, end: 20101107
  3. JANUVIA [Suspect]
     Indication: TYPE 2 DIABETES MELLITUS
     Dates: start: 20090116, end: 20091229
  4. VICTOZA [Suspect]
     Indication: TYPE 2 DIABETES MELLITUS
     Dates: start: 20100121, end: 20100220

REACTIONS (2)
  - Pancreatic carcinoma [Fatal]
  - Pancreatitis [Unknown]
